FAERS Safety Report 18616060 (Version 2)
Quarter: 2020Q4

REPORT INFORMATION
  Report Type: Spontaneous
  Country: FR (occurrence: FR)
  Receive Date: 20201214
  Receipt Date: 20201221
  Transmission Date: 20210114
  Serious: Yes (Hospitalization)
  Sender: FDA-Public Use
  Company Number: NVSC2020FR326985

PATIENT
  Age: 32 Year
  Sex: Female

DRUGS (3)
  1. HYDROCORTISONE. [Suspect]
     Active Substance: HYDROCORTISONE
     Indication: ADRENAL INSUFFICIENCY
     Dosage: 100 MG, ONCE/SINGLE 1 TOTAL (LAST DOSE RECEIVED ON JUN 2020)
     Route: 065
     Dates: start: 202006, end: 202006
  2. GYMISO [Suspect]
     Active Substance: MISOPROSTOL
     Indication: ABORTION SPONTANEOUS
     Dosage: 400 MG, 1 TOTAL, (LAST DOSE RECEIVED ON JUN 2020)
     Route: 048
     Dates: start: 20190602
  3. GYMISO [Suspect]
     Active Substance: MISOPROSTOL
     Dosage: 400 MG, ONCE/SINGLE
     Route: 048
     Dates: start: 20190525, end: 20190525

REACTIONS (3)
  - Haemorrhage [Recovered/Resolved]
  - Drug ineffective [Recovered/Resolved]
  - Haemorrhage [Recovered/Resolved]

NARRATIVE: CASE EVENT DATE: 20190525
